FAERS Safety Report 15740483 (Version 1)
Quarter: 2018Q4

REPORT INFORMATION
  Report Type: Spontaneous
  Country: GB (occurrence: GB)
  Receive Date: 20181219
  Receipt Date: 20181219
  Transmission Date: 20190205
  Serious: Yes (Other)
  Sender: FDA-Public Use
  Company Number: GB-PFIZER INC-2018515805

PATIENT
  Age: 75 Year
  Sex: Female
  Weight: 88 kg

DRUGS (16)
  1. OXYGESIC [Concomitant]
     Active Substance: OXYCODONE
     Dosage: 1 DF, UNK EVERY 12 HOURS
     Dates: start: 20180814
  2. SIMVASTATIN. [Concomitant]
     Active Substance: SIMVASTATIN
     Dosage: 1 DF, 1X/DAY / NIGHT
     Dates: start: 20180814
  3. DULOXETINE. [Concomitant]
     Active Substance: DULOXETINE
     Dosage: 1 DF, 1X/DAY
     Dates: start: 20180814
  4. SERTRALINE [Concomitant]
     Active Substance: SERTRALINE HYDROCHLORIDE
     Dosage: 1 DF, 1X/DAY
     Dates: start: 20180814
  5. INFLUENZA VIRUS [Concomitant]
     Active Substance: INFLUENZA VIRUS VACCINE
     Dosage: USE AS DIRECTED
     Dates: start: 20181114, end: 20181114
  6. OMEPRAZOLE. [Concomitant]
     Active Substance: OMEPRAZOLE
     Dosage: 2 DF, 1X/DAY
     Dates: start: 20180814
  7. DONEPEZIL HYDROCHLORIDE. [Concomitant]
     Active Substance: DONEPEZIL HYDROCHLORIDE
     Dosage: 1 DF, 1X/DAY MORNING
     Dates: start: 20180814
  8. QUININE [Concomitant]
     Active Substance: QUININE
     Dosage: 1 DF, 1X/DAY / NIGHT
     Dates: start: 20180814
  9. FUROSEMIDE. [Concomitant]
     Active Substance: FUROSEMIDE
     Dosage: 3 DF, 1X/DAY / TWO TO BE TAKEN EACH MORNING AND ONE LUNCHTIME
     Dates: start: 20180814
  10. TOLTERODINE TARTRATE. [Concomitant]
     Active Substance: TOLTERODINE TARTRATE
     Dosage: 2 DF, 1X/DAY
     Dates: start: 20180814, end: 20181005
  11. DOXYCYCLINE MONOHYDRATE [Suspect]
     Active Substance: DOXYCYCLINE
     Dosage: 100 MG, UNK / SUGAR FREE
     Dates: start: 20180828
  12. GABAPENTIN. [Concomitant]
     Active Substance: GABAPENTIN
     Dosage: 6 DF, 1X/DAY / FOR SEVEN DAYS
     Dates: start: 20180814
  13. GLICLAZIDE [Concomitant]
     Active Substance: GLICLAZIDE
     Dosage: 2 DF, 1X/DAY WITH BREAKFAST
     Dates: start: 20180814
  14. METFORMIN [Concomitant]
     Active Substance: METFORMIN HYDROCHLORIDE
     Dosage: 4 DF, 1X/DAY MORNING AND EVENING
     Dates: start: 20180814
  15. THEICAL D3 [Concomitant]
     Dosage: 2 DF, 1X/DAY
     Dates: start: 20180814
  16. RAMIPRIL. [Concomitant]
     Active Substance: RAMIPRIL
     Dosage: 1 DF, 1X/DAY
     Dates: start: 20180814

REACTIONS (2)
  - Rash [Unknown]
  - Skin irritation [Recovered/Resolved]

NARRATIVE: CASE EVENT DATE: 20181119
